FAERS Safety Report 7974848-0 (Version None)
Quarter: 2011Q4

REPORT INFORMATION
  Report Type: 
  Country: None (occurrence: None)
  Receive Date: 20111213
  Receipt Date: 20111205
  Transmission Date: 20120403
  Serious: Yes (Death)
  Sender: FDA-Public Use
  Company Number: IE-GILEAD-2011-0047675

PATIENT
  Sex: Male

DRUGS (5)
  1. NORVIR [Concomitant]
     Dosage: 100 MG, QD
     Route: 064
  2. METHADONE HCL [Concomitant]
     Route: 064
  3. ZOPICLONE [Concomitant]
     Route: 064
  4. REYATAZ [Concomitant]
     Dosage: 300 MG, QD
     Route: 064
  5. EMTRICITABINE/TENOFOVIR DISOPROXIL FUMARATE [Suspect]
     Indication: HIV INFECTION
     Dosage: 1 DF, QD
     Route: 064

REACTIONS (2)
  - INTRAVENTRICULAR HAEMORRHAGE [None]
  - PREMATURE DELIVERY [None]
